FAERS Safety Report 17143232 (Version 1)
Quarter: 2019Q4

REPORT INFORMATION
  Report Type: Spontaneous
  Country: US (occurrence: US)
  Receive Date: 20191211
  Receipt Date: 20191211
  Transmission Date: 20200122
  Serious: No
  Sender: FDA-Public Use
  Company Number: US-AMERICAN REGENT INC-20182148

PATIENT

DRUGS (1)
  1. VENOFER [Suspect]
     Active Substance: IRON SUCROSE
     Indication: PRODUCT USED FOR UNKNOWN INDICATION
     Dosage: UNKNOWN 1 DAYS
     Route: 065
     Dates: start: 20181106, end: 20181106

REACTIONS (2)
  - Faeces discoloured [Unknown]
  - Chromaturia [Unknown]

NARRATIVE: CASE EVENT DATE: 20181106
